FAERS Safety Report 8544425-1 (Version None)
Quarter: 2012Q3

REPORT INFORMATION
  Report Type: 
  Country: None (occurrence: None)
  Receive Date: 20120719
  Receipt Date: 20120719
  Transmission Date: 20120928
  Serious: Yes (Hospitalization, Other)
  Sender: FDA-Public Use
  Company Number: None

PATIENT
  Sex: Male

DRUGS (5)
  1. COGENTIN [Concomitant]
  2. ABILIFY [Concomitant]
  3. EFFEXOR XR [Concomitant]
  4. ATIVAN [Concomitant]
  5. RISPERIDAL 6 MG [Suspect]

REACTIONS (7)
  - PANIC REACTION [None]
  - OCULOGYRIC CRISIS [None]
  - STARING [None]
  - TREMOR [None]
  - CONVULSION [None]
  - ANXIETY [None]
  - DYSTONIA [None]
